FAERS Safety Report 9347453 (Version 3)
Quarter: 2013Q4

REPORT INFORMATION
  Report Type: Spontaneous
  Country: GB (occurrence: GB)
  Receive Date: 20130614
  Receipt Date: 20131107
  Transmission Date: 20140711
  Serious: Yes (Hospitalization, Other)
  Sender: FDA-Public Use
  Company Number: GB-ALLERGAN-1308388US

PATIENT
  Age: 5 Year
  Sex: Female
  Weight: 18 kg

DRUGS (4)
  1. BOTOX [Suspect]
     Indication: MUSCLE SPASTICITY
     Dosage: 100 UNITS, UNK
     Route: 030
     Dates: start: 20130529, end: 20130529
  2. EPILIM [Concomitant]
     Indication: CEREBRAL PALSY
  3. SODIUM VALPROATE [Concomitant]
     Dosage: 600 MG, QD
  4. VITAMIN D [Suspect]
     Dosage: UNK UNK, QD

REACTIONS (3)
  - Somnolence [Unknown]
  - Lethargy [Recovering/Resolving]
  - Pyrexia [Unknown]
